FAERS Safety Report 20725580 (Version 1)
Quarter: 2022Q2

REPORT INFORMATION
  Report Type: Spontaneous
  Country: DE (occurrence: DE)
  Receive Date: 20220419
  Receipt Date: 20220419
  Transmission Date: 20220720
  Serious: Yes (Congenital Anomaly, Other)
  Sender: FDA-Public Use
  Company Number: DE-BRISTOL-MYERS SQUIBB COMPANY-2022-021194

PATIENT
  Sex: Female

DRUGS (4)
  1. ELIQUIS [Suspect]
     Active Substance: APIXABAN
     Indication: Atrial fibrillation
     Dosage: DOSE : 5 MG;     FREQ : 2 X DAILY
     Route: 065
  2. VITAMINS [Concomitant]
     Active Substance: VITAMINS
     Indication: Product used for unknown indication
     Route: 065
  3. 2,3-DIMERCAPTO-1-PROPANESULFONIC ACID [Concomitant]
     Active Substance: 2,3-DIMERCAPTO-1-PROPANESULFONIC ACID
     Indication: Product used for unknown indication
     Route: 065
  4. EDETIC ACID [Concomitant]
     Active Substance: EDETIC ACID
     Indication: Product used for unknown indication
     Route: 065

REACTIONS (3)
  - Ubiquinone decreased [Unknown]
  - Fatty acid deficiency [Unknown]
  - Vitamin K decreased [Unknown]
